FAERS Safety Report 5178841-5 (Version None)
Quarter: 2006Q4

REPORT INFORMATION
  Report Type: 
  Country: None (occurrence: None)
  Receive Date: 20061208
  Receipt Date: 20061127
  Transmission Date: 20070319
  Serious: Yes (Other)
  Sender: FDA-Public Use
  Company Number: 2006147580

PATIENT
  Age: 74 Year
  Sex: Female
  Weight: 99.7913 kg

DRUGS (6)
  1. LIPITOR [Suspect]
     Indication: BLOOD CHOLESTEROL INCREASED
     Dosage: 20 MG (20 MG, 1 IN 1 D)
     Dates: start: 19980901
  2. QUININE SULFATE [Concomitant]
  3. CELEBREX [Concomitant]
  4. VIOXX [Concomitant]
  5. AVANDIA [Concomitant]
  6. HYOSCYAMINE [Concomitant]

REACTIONS (1)
  - KNEE ARTHROPLASTY [None]
